FAERS Safety Report 9335114 (Version 1)
Quarter: 2013Q2

REPORT INFORMATION
  Report Type: Spontaneous
  Country: CA (occurrence: CA)
  Receive Date: 20130606
  Receipt Date: 20130606
  Transmission Date: 20140414
  Serious: Yes (Hospitalization)
  Sender: FDA-Public Use
  Company Number: CA-GLAXOSMITHKLINE-A1025442A

PATIENT
  Sex: Male
  Weight: 51.4 kg

DRUGS (2)
  1. ADVAIR [Suspect]
     Indication: CHRONIC OBSTRUCTIVE PULMONARY DISEASE
     Dosage: 1PUFF TWICE PER DAY
     Route: 065
     Dates: start: 2005
  2. ADVAIR INHALER [Suspect]
     Indication: CHRONIC OBSTRUCTIVE PULMONARY DISEASE
     Route: 065

REACTIONS (18)
  - Pneumonia [Recovering/Resolving]
  - Myalgia [Unknown]
  - Weight decreased [Unknown]
  - Rash [Unknown]
  - Urticaria [Unknown]
  - Chest discomfort [Unknown]
  - Dyspnoea [Unknown]
  - Wheezing [Unknown]
  - Eye swelling [Unknown]
  - Eye discharge [Unknown]
  - Bronchitis [Unknown]
  - Asthma [Unknown]
  - Muscle atrophy [Unknown]
  - Muscle spasms [Unknown]
  - Asthenia [Unknown]
  - Ill-defined disorder [Unknown]
  - Exercise tolerance decreased [Unknown]
  - Total lung capacity decreased [Unknown]
